FAERS Safety Report 5499956-8 (Version None)
Quarter: 2007Q4

REPORT INFORMATION
  Report Type: 
  Country: None (occurrence: None)
  Receive Date: 20071026
  Receipt Date: 20071018
  Transmission Date: 20080405
  Serious: Yes (Other)
  Sender: FDA-Public Use
  Company Number: FR-PFIZER INC-2007088728

PATIENT
  Age: 67 Year
  Sex: Female

DRUGS (2)
  1. TAHOR [Suspect]
     Indication: DRUG USE FOR UNKNOWN INDICATION
  2. ALL OTHER THERAPEUTIC PRODUCTS [Concomitant]
     Indication: OSTEOARTHRITIS

REACTIONS (2)
  - CATARACT [None]
  - VISION BLURRED [None]
